FAERS Safety Report 25811744 (Version 1)
Quarter: 2025Q3

REPORT INFORMATION
  Report Type: Spontaneous
  Country: US (occurrence: US)
  Receive Date: 20250917
  Receipt Date: 20250917
  Transmission Date: 20251021
  Serious: No
  Sender: DR REDDYS
  Company Number: US-MLMSERVICE-20250822-PI623734-00327-1

PATIENT
  Age: 40 Year
  Sex: Female

DRUGS (4)
  1. VALPROIC ACID [Suspect]
     Active Substance: VALPROIC ACID
     Indication: Musculoskeletal stiffness
  2. VALPROIC ACID [Suspect]
     Active Substance: VALPROIC ACID
     Indication: Fall
  3. ETHOSUXIMIDE [Concomitant]
     Active Substance: ETHOSUXIMIDE
     Indication: Musculoskeletal stiffness
  4. ETHOSUXIMIDE [Concomitant]
     Active Substance: ETHOSUXIMIDE
     Indication: Fall

REACTIONS (2)
  - Fatigue [Unknown]
  - Postural tremor [Unknown]
